FAERS Safety Report 15029641 (Version 1)
Quarter: 2018Q2

REPORT INFORMATION
  Report Type: Spontaneous
  Country: NL (occurrence: NL)
  Receive Date: 20180619
  Receipt Date: 20180619
  Transmission Date: 20180711
  Serious: Yes (Other)
  Sender: FDA-Public Use
  Company Number: NL-MYLANLABS-2018M1038107

PATIENT
  Age: 57 Year
  Sex: Female
  Weight: 55.39 kg

DRUGS (5)
  1. VENLAFAXINE [Suspect]
     Active Substance: VENLAFAXINE HYDROCHLORIDE
     Indication: MAJOR DEPRESSION
     Dosage: 200 MG, QD
     Route: 065
  2. LEVOMEFOLIC ACID [Interacting]
     Active Substance: LEVOMEFOLIC ACID
     Indication: DECREASED APPETITE
     Dosage: 15 MG, QD
     Route: 048
  3. LEVOMEFOLIC ACID [Interacting]
     Active Substance: LEVOMEFOLIC ACID
     Dosage: 15 MG, UNK
     Route: 048
  4. LEVOMEFOLIC ACID [Interacting]
     Active Substance: LEVOMEFOLIC ACID
     Route: 048
  5. VENLAFAXINE [Suspect]
     Active Substance: VENLAFAXINE HYDROCHLORIDE
     Route: 065

REACTIONS (8)
  - Drug ineffective [Unknown]
  - Food craving [Not Recovered/Not Resolved]
  - Insomnia [Recovering/Resolving]
  - Libido decreased [Recovering/Resolving]
  - Drug interaction [Unknown]
  - Decreased appetite [Not Recovered/Not Resolved]
  - Weight increased [Not Recovered/Not Resolved]
  - Asthenia [Recovering/Resolving]
